FAERS Safety Report 6447436-5 (Version None)
Quarter: 2009Q4

REPORT INFORMATION
  Report Type: 
  Country: None (occurrence: None)
  Receive Date: 20091119
  Receipt Date: 20091109
  Transmission Date: 20100525
  Serious: Yes (Hospitalization)
  Sender: FDA-Public Use
  Company Number: NL-ABBOTT-09P-114-0607768-00

PATIENT
  Sex: Female

DRUGS (10)
  1. CLARITHROMYCIN [Suspect]
     Indication: LUNG INFECTION
     Route: 048
     Dates: end: 20091010
  2. TRISPORAL [Concomitant]
     Indication: FUNGAL INFECTION
     Route: 048
     Dates: start: 20060101
  3. NEXIUM [Concomitant]
     Indication: PROPHYLAXIS AGAINST GASTROINTESTINAL ULCER
     Route: 048
     Dates: start: 20020101
  4. SERTIVA [Concomitant]
     Indication: PULMONARY FUNCTION TEST DECREASED
     Route: 055
     Dates: start: 20020101
  5. SIMCORT TURBOINYHALER [Concomitant]
     Indication: PULMONARY FUNCTION TEST DECREASED
     Dosage: 200/6 MCG 2-3 TIMES DAILY
     Route: 055
     Dates: start: 20020101
  6. OXIS TURBOHALER [Concomitant]
     Indication: PULMONARY FUNCTION TEST DECREASED
     Dosage: 12 MCG 1-3 TIMES DAILY
     Route: 055
     Dates: start: 20020101
  7. HYDROCHLOROTHIAZIDE [Concomitant]
     Indication: DRUG USE FOR UNKNOWN INDICATION
  8. ASCAL [Concomitant]
     Indication: ANTICOAGULANT THERAPY
  9. LACTULOSE [Concomitant]
     Indication: GASTROINTESTINAL DISORDER
     Route: 048
  10. DULCOLAX [Concomitant]
     Indication: DRUG USE FOR UNKNOWN INDICATION

REACTIONS (2)
  - DYSPNOEA [None]
  - LUNG DISORDER [None]
